FAERS Safety Report 10239297 (Version 2)
Quarter: 2014Q3

REPORT INFORMATION
  Report Type: Report from Study
  Country: TN (occurrence: TN)
  Receive Date: 20140616
  Receipt Date: 20140721
  Transmission Date: 20150326
  Serious: Yes (Death)
  Sender: FDA-Public Use
  Company Number: TN-SA-2014SA076212

PATIENT
  Age: 59 Year
  Sex: Male

DRUGS (7)
  1. CAPTOPRIL. [Concomitant]
     Active Substance: CAPTOPRIL
     Route: 048
  2. ASPIRIN. [Concomitant]
     Active Substance: ASPIRIN
     Route: 048
  3. CINCOR [Concomitant]
     Route: 048
  4. ATOR [Concomitant]
     Active Substance: ATORVASTATIN CALCIUM
     Route: 048
  5. LASILIX [Concomitant]
     Active Substance: FUROSEMIDE
     Route: 048
  6. PLAVIX [Suspect]
     Active Substance: CLOPIDOGREL BISULFATE
     Indication: MYOCARDIAL INFARCTION
     Dosage: DOSE:75
     Route: 048
     Dates: start: 20120306, end: 20140420
  7. LANTUS [Concomitant]
     Active Substance: INSULIN GLARGINE
     Route: 058

REACTIONS (2)
  - Depression [Fatal]
  - Renal failure chronic [Fatal]

NARRATIVE: CASE EVENT DATE: 20140420
